FAERS Safety Report 9047456 (Version 1)
Quarter: 2013Q1

REPORT INFORMATION
  Report Type: Report from Study
  Country: US (occurrence: US)
  Receive Date: 20130201
  Receipt Date: 20130201
  Transmission Date: 20140127
  Serious: No
  Sender: FDA-Public Use
  Company Number: US-ABBOTT-12P-163-1029384-00

PATIENT
  Age: 51 Year
  Sex: Male

DRUGS (3)
  1. HUMIRA [Suspect]
     Indication: PSORIASIS
     Dates: start: 201211
  2. HUMIRA [Suspect]
     Dosage: PARTIAL INJECTION INTO FINGER
     Dates: start: 20121206
  3. LISINOPRIL [Concomitant]
     Indication: PRODUCT USED FOR UNKNOWN INDICATION
     Dosage: 20/12.5

REACTIONS (4)
  - Wrong technique in drug usage process [Unknown]
  - Limb injury [Unknown]
  - Hypoaesthesia [Unknown]
  - Incorrect dose administered [Unknown]
